FAERS Safety Report 5890223-7 (Version None)
Quarter: 2008Q3

REPORT INFORMATION
  Report Type: 
  Country: None (occurrence: None)
  Receive Date: 20080919
  Receipt Date: 20080910
  Transmission Date: 20090109
  Serious: Yes (Other)
  Sender: FDA-Public Use
  Company Number: US-PFIZER INC-2008076499

PATIENT
  Sex: Female
  Weight: 86.363 kg

DRUGS (3)
  1. NORVASC [Suspect]
     Indication: HYPERTENSION
     Route: 048
     Dates: end: 20080905
  2. NORVASC [Suspect]
     Route: 048
  3. RYTHMOL [Suspect]
     Indication: PALPITATIONS
     Dates: end: 20080101

REACTIONS (5)
  - HALLUCINATION [None]
  - HYPERTENSION [None]
  - LICHEN SCLEROSUS [None]
  - PALPITATIONS [None]
  - STOMATITIS [None]
